FAERS Safety Report 24279624 (Version 5)
Quarter: 2024Q4

REPORT INFORMATION
  Report Type: Spontaneous
  Country: JP (occurrence: JP)
  Receive Date: 20240904
  Receipt Date: 20241112
  Transmission Date: 20250114
  Serious: Yes (Hospitalization, Other)
  Sender: GLAXOSMITHKLINE
  Company Number: JP-GSKJP-JP2024JPN107931AA

PATIENT

DRUGS (20)
  1. DAPRODUSTAT [Suspect]
     Active Substance: DAPRODUSTAT
     Indication: Nephrogenic anaemia
     Dosage: 4 MG, 1D (AFTER BREAKFAST)
     Route: 048
     Dates: start: 20231109
  2. SPIRONOLACTONE [Suspect]
     Active Substance: SPIRONOLACTONE
     Indication: Hypertension
     Dosage: 25 MG, BID
     Route: 048
  3. SPIRONOLACTONE [Concomitant]
     Active Substance: SPIRONOLACTONE
     Dosage: 25 MG, BID (AFTER BREAKFAST AND DINNER)
     Dates: start: 20231218
  4. FENTANYL [Concomitant]
     Active Substance: FENTANYL
     Dosage: 2 MG, 1D, 1 SHEET
     Dates: start: 20231109
  5. FENTANYL [Concomitant]
     Active Substance: FENTANYL
     Dosage: 1 MG, 1D, 1 SHEET
     Dates: start: 20240801
  6. MIROGABALIN BESYLATE [Concomitant]
     Active Substance: MIROGABALIN BESYLATE
     Dosage: 5 MG, BID (AFTER BREAKFAST AND DINNER)
     Dates: start: 20231109
  7. MAGNESIUM OXIDE [Concomitant]
     Active Substance: MAGNESIUM OXIDE
     Dosage: 330 MG, TID (AFTER BREAKFAST, LUNCH, AND DINNER)
     Dates: start: 20231109
  8. CALCIUM POLYSTYRENE SULFONATE [Concomitant]
     Active Substance: CALCIUM POLYSTYRENE SULFONATE
     Dosage: 25 G, TID, 1 PC (AFTER BREAKFAST, LUNCH, AND DINNER)
     Dates: start: 20240104
  9. SODIUM BICARBONATE\SODIUM PHOSPHATE, MONOBASIC [Concomitant]
     Active Substance: SODIUM BICARBONATE\SODIUM PHOSPHATE, MONOBASIC
     Dosage: UNK, 1D, 1 PC
     Dates: start: 20240104
  10. DAYVIGO [Concomitant]
     Active Substance: LEMBOREXANT
     Dosage: 5 MG, 1D (BEFORE BEDTIME)
     Dates: start: 20240801
  11. SODIUM FERROUS CITRATE [Concomitant]
     Active Substance: SODIUM FERROUS CITRATE
     Dosage: 50 MG, 1D (AFTER BREAKFAST)
     Dates: start: 20240801
  12. NIFEDIPINE [Concomitant]
     Active Substance: NIFEDIPINE
     Dosage: 40 MG, 1D, (AT THE TIME OF WAKING UP)
     Dates: start: 20231218
  13. ASPIRIN\VONOPRAZAN FUMARATE [Concomitant]
     Active Substance: ASPIRIN\VONOPRAZAN FUMARATE
     Dosage: 1 DF, 1D (AFTER BREAKFAST)
     Dates: start: 20231218
  14. CLOPIDOGREL BISULFATE [Concomitant]
     Active Substance: CLOPIDOGREL BISULFATE
     Dosage: 75 MG, 1D (AFTER BREAKFAST)
     Dates: start: 20231218
  15. AMLODIPINE [Concomitant]
     Active Substance: AMLODIPINE BESYLATE
     Dosage: 10 MG, 1D (AFTER DINNER)
     Dates: start: 20231218
  16. SENNOSIDES [Concomitant]
     Active Substance: SENNOSIDES
     Dosage: 24 MG, 1D (AFTER DINNER)
     Dates: start: 20231218
  17. FEXOFENADINE HYDROCHLORIDE [Concomitant]
     Active Substance: FEXOFENADINE HYDROCHLORIDE
     Dosage: 30 MG, BID (AFTER BREAKFAST AND DINNER)
     Dates: start: 20231218
  18. LASIX [Concomitant]
     Active Substance: FUROSEMIDE
     Dosage: 20 MG, BID (AFTER BREAKFAST AND DINNER)
     Dates: start: 20231218
  19. ZINC OXIDE [Concomitant]
     Active Substance: ZINC OXIDE
     Dosage: UNK, APPLY ONCE OR SEVERAL TIMES A DAY, WHOLE BODY
     Dates: start: 20231218
  20. BETAMETHASONE DIPROPIONATE\CALCIPOTRIENE MONOHYDRATE [Concomitant]
     Active Substance: BETAMETHASONE DIPROPIONATE\CALCIPOTRIENE MONOHYDRATE
     Dosage: UNK
     Dates: start: 20231218

REACTIONS (4)
  - Hyperkalaemia [Recovered/Resolved]
  - Cerebral infarction [Recovered/Resolved]
  - Renal impairment [Recovered/Resolved]
  - Muscular weakness [Recovered/Resolved]

NARRATIVE: CASE EVENT DATE: 20231214
